FAERS Safety Report 20628791 (Version 1)
Quarter: 2022Q1

REPORT INFORMATION
  Report Type: Spontaneous
  Country: US (occurrence: None)
  Receive Date: 20220322
  Receipt Date: 20220322
  Transmission Date: 20220423
  Serious: Yes (Hospitalization)
  Sender: FDA-Public Use
  Company Number: None

PATIENT
  Age: 73 Year
  Sex: Male
  Weight: 86.3 kg

DRUGS (16)
  1. ENFORTUMAB VEDOTIN [Suspect]
     Active Substance: ENFORTUMAB VEDOTIN
     Indication: Bladder cancer
     Dosage: FREQUENCY : AS DIRECTED;?D1+ D8-D21 DAY CYCLE
     Route: 041
     Dates: start: 20210624, end: 20220127
  2. PEMBROLIZUMAB [Suspect]
     Active Substance: PEMBROLIZUMAB
     Indication: Bladder cancer
     Dosage: OTHER FREQUENCY : EVERY 21 DAY;?
     Route: 041
     Dates: start: 20210624, end: 20220127
  3. Plavix 75mg 00 [Concomitant]
     Dates: start: 20160601
  4. Aspirin 81mg QD [Concomitant]
     Dates: start: 20160601
  5. Norvasc 5 mg QD [Concomitant]
     Dates: start: 20210831
  6. |mdur15mgQD [Concomitant]
     Dates: start: 20220101
  7. Singular 10mg QD [Concomitant]
     Dates: start: 20210321
  8. Potassium Chloride 20mEq QD [Concomitant]
     Dates: start: 20160628
  9. hydroCHLOROthiazide 25mg QD [Concomitant]
     Dates: start: 20160829
  10. Lantus-25unit QAM, 15unit QPM [Concomitant]
     Dates: start: 20220211
  11. Lopressor25mg BID [Concomitant]
     Dates: start: 20160101
  12. Nesina 25mg QD [Concomitant]
     Dates: start: 20210401
  13. Lisinopril 20mg QD [Concomitant]
     Dates: start: 20160101
  14. Lipitor 80mg QD [Concomitant]
     Dates: start: 20160101
  15. LYRICA [Concomitant]
     Active Substance: PREGABALIN
  16. Jardiance12.5mg QD [Concomitant]
     Dates: start: 20210101

REACTIONS (4)
  - Vomiting [None]
  - Acute kidney injury [None]
  - Urinary tract infection [None]
  - Dehydration [None]

NARRATIVE: CASE EVENT DATE: 20220223
